FAERS Safety Report 5281534-7 (Version None)
Quarter: 2007Q1

REPORT INFORMATION
  Report Type: 
  Country: None (occurrence: None)
  Receive Date: 20070330
  Receipt Date: 20070322
  Transmission Date: 20070707
  Serious: Yes (Hospitalization, Other)
  Sender: FDA-Public Use
  Company Number: US-AVENTIS-200711919US

PATIENT
  Sex: Female

DRUGS (6)
  1. KETEK [Suspect]
     Indication: PNEUMONIA
     Dosage: DOSE: 2 TABS
     Route: 048
     Dates: start: 20070309, end: 20070313
  2. NEURONTIN [Concomitant]
     Dosage: DOSE: UNK
  3. EFFEXOR [Concomitant]
     Dosage: DOSE: UNK
  4. CYMBALTA [Concomitant]
     Dosage: DOSE: UNK
  5. PREMARIN [Concomitant]
     Dosage: DOSE: UNK
  6. TRAMADOL HCL [Concomitant]
     Dosage: DOSE: UNK

REACTIONS (19)
  - ABDOMINAL PAIN [None]
  - ALANINE AMINOTRANSFERASE INCREASED [None]
  - ASPARTATE AMINOTRANSFERASE INCREASED [None]
  - BLOOD ALKALINE PHOSPHATASE INCREASED [None]
  - BLOOD BILIRUBIN INCREASED [None]
  - BLOOD CREATINE PHOSPHOKINASE INCREASED [None]
  - BLOOD UREA INCREASED [None]
  - C-REACTIVE PROTEIN INCREASED [None]
  - FATIGUE [None]
  - HEPATIC FAILURE [None]
  - HEPATITIS [None]
  - LIPASE INCREASED [None]
  - NAUSEA [None]
  - PAIN [None]
  - RENAL FAILURE [None]
  - SINUS TACHYCARDIA [None]
  - THROMBOSIS [None]
  - VOMITING [None]
  - WHITE BLOOD CELL COUNT INCREASED [None]
